FAERS Safety Report 16064738 (Version 56)
Quarter: 2023Q2

REPORT INFORMATION
  Report Type: Report from Study
  Country: GB (occurrence: GB)
  Receive Date: 20190312
  Receipt Date: 20230410
  Transmission Date: 20230722
  Serious: Yes (Death, Hospitalization, Congenital Anomaly, Other)
  Sender: FDA-Public Use
  Company Number: GB-NOVPHSZ-PHHY2018GB086977

PATIENT
  Age: 43 Year
  Sex: Female
  Weight: 43 kg

DRUGS (248)
  1. METFORMIN [Suspect]
     Active Substance: METFORMIN HYDROCHLORIDE
     Indication: Product used for unknown indication
     Dosage: UNK
     Route: 065
  2. METFORMIN [Suspect]
     Active Substance: METFORMIN HYDROCHLORIDE
     Dosage: UNK
     Route: 048
  3. METFORMIN [Suspect]
     Active Substance: METFORMIN HYDROCHLORIDE
     Indication: Product used for unknown indication
     Dosage: UNK
     Route: 065
  4. METFORMIN [Suspect]
     Active Substance: METFORMIN HYDROCHLORIDE
     Dosage: UNK
     Route: 065
  5. METFORMIN [Suspect]
     Active Substance: METFORMIN HYDROCHLORIDE
     Dosage: UNK
     Route: 048
  6. METFORMIN [Suspect]
     Active Substance: METFORMIN HYDROCHLORIDE
     Dosage: UNK
     Route: 048
  7. METFORMIN [Suspect]
     Active Substance: METFORMIN HYDROCHLORIDE
     Dosage: UNK
     Route: 065
  8. METFORMIN [Suspect]
     Active Substance: METFORMIN HYDROCHLORIDE
     Dosage: UNK
     Route: 065
  9. METFORMIN [Suspect]
     Active Substance: METFORMIN HYDROCHLORIDE
     Dosage: UNK
     Route: 065
  10. METFORMIN [Suspect]
     Active Substance: METFORMIN HYDROCHLORIDE
     Dosage: UNK
     Route: 065
  11. METFORMIN [Suspect]
     Active Substance: METFORMIN HYDROCHLORIDE
     Dosage: UNK
     Route: 065
  12. METFORMIN [Suspect]
     Active Substance: METFORMIN HYDROCHLORIDE
     Dosage: UNK
     Route: 065
  13. EMTRICITABINE\TENOFOVIR DISOPROXIL [Suspect]
     Active Substance: EMTRICITABINE\TENOFOVIR DISOPROXIL
     Indication: HIV infection
     Dosage: 1 DF, QD (TAB/CAP, DAILY) (START DATE: 10-JUN-2017 )
     Route: 048
     Dates: end: 20180205
  14. EMTRICITABINE\TENOFOVIR DISOPROXIL [Suspect]
     Active Substance: EMTRICITABINE\TENOFOVIR DISOPROXIL
     Indication: Supplementation therapy
     Dosage: 1 DF, QD (ALSO RECEIVED ON 05-FEB-2018)
     Route: 048
     Dates: start: 20171006, end: 20180205
  15. EMTRICITABINE\TENOFOVIR DISOPROXIL [Suspect]
     Active Substance: EMTRICITABINE\TENOFOVIR DISOPROXIL
     Dosage: 1 DF, QD, ALSO RECEIVED ON 05-FEB-2018
     Route: 048
     Dates: start: 20171006
  16. EMTRICITABINE\TENOFOVIR DISOPROXIL [Suspect]
     Active Substance: EMTRICITABINE\TENOFOVIR DISOPROXIL
     Dosage: 1 DOSAGE FORM, QD
     Route: 048
  17. EMTRICITABINE\TENOFOVIR DISOPROXIL [Suspect]
     Active Substance: EMTRICITABINE\TENOFOVIR DISOPROXIL
     Dosage: UNK
     Route: 048
  18. EMTRICITABINE\TENOFOVIR DISOPROXIL [Suspect]
     Active Substance: EMTRICITABINE\TENOFOVIR DISOPROXIL
     Dosage: 1 DOSAGE FORM, QD
     Route: 048
  19. EMTRICITABINE\TENOFOVIR DISOPROXIL [Suspect]
     Active Substance: EMTRICITABINE\TENOFOVIR DISOPROXIL
     Dosage: 1DF QD TABLET/CAPSULE, DAILY)
     Route: 048
     Dates: start: 20180205
  20. EMTRICITABINE\TENOFOVIR DISOPROXIL [Suspect]
     Active Substance: EMTRICITABINE\TENOFOVIR DISOPROXIL
     Dosage: UNK, QD
     Route: 048
     Dates: start: 20180205, end: 20180205
  21. EMTRICITABINE\TENOFOVIR DISOPROXIL [Suspect]
     Active Substance: EMTRICITABINE\TENOFOVIR DISOPROXIL
     Dosage: 1 DOSAGE FORM, QD
     Route: 048
     Dates: start: 20170610, end: 20180205
  22. EMTRICITABINE\TENOFOVIR DISOPROXIL [Suspect]
     Active Substance: EMTRICITABINE\TENOFOVIR DISOPROXIL
     Dosage: 1DF QD TABLET/CAPSULE, DAILY)
     Route: 048
     Dates: start: 20171006, end: 20180205
  23. EMTRICITABINE\TENOFOVIR DISOPROXIL [Suspect]
     Active Substance: EMTRICITABINE\TENOFOVIR DISOPROXIL
     Dosage: 1 DF QD 1 TABLET/CAPSULE, DAILY
     Route: 048
  24. EMTRICITABINE\TENOFOVIR DISOPROXIL [Suspect]
     Active Substance: EMTRICITABINE\TENOFOVIR DISOPROXIL
     Dosage: (1DF QD (1 TABLET/CAPSULE, DAILY)
     Route: 048
     Dates: start: 20180205
  25. EMTRICITABINE\TENOFOVIR DISOPROXIL [Suspect]
     Active Substance: EMTRICITABINE\TENOFOVIR DISOPROXIL
     Dosage: 1 DOSAGE FORM, QD (1 DOSAGE FORM, QD ,1 TABLET/CAPSULE, DAILY)
     Route: 048
     Dates: end: 20180205
  26. LABETALOL [Suspect]
     Active Substance: LABETALOL\LABETALOL HYDROCHLORIDE
     Indication: Supplementation therapy
     Dosage: UNK
     Route: 065
  27. LABETALOL [Suspect]
     Active Substance: LABETALOL\LABETALOL HYDROCHLORIDE
     Dosage: UNK
     Route: 048
  28. LABETALOL [Suspect]
     Active Substance: LABETALOL\LABETALOL HYDROCHLORIDE
     Dosage: UNK
     Route: 048
  29. LABETALOL [Suspect]
     Active Substance: LABETALOL\LABETALOL HYDROCHLORIDE
     Dosage: UNK
     Route: 048
  30. LABETALOL [Suspect]
     Active Substance: LABETALOL\LABETALOL HYDROCHLORIDE
     Dosage: UNK
     Route: 065
  31. LABETALOL [Suspect]
     Active Substance: LABETALOL\LABETALOL HYDROCHLORIDE
     Dosage: UNK
     Route: 065
  32. LABETALOL [Suspect]
     Active Substance: LABETALOL\LABETALOL HYDROCHLORIDE
     Dosage: UNK
     Route: 065
  33. LABETALOL [Suspect]
     Active Substance: LABETALOL\LABETALOL HYDROCHLORIDE
     Dosage: UNK
     Route: 048
  34. EFAVIRENZ [Suspect]
     Active Substance: EFAVIRENZ
     Indication: HIV infection
     Dosage: 1 DOSAGE FORM, QD 1 TABLET/CAPSULE, QD
     Route: 048
  35. EFAVIRENZ [Suspect]
     Active Substance: EFAVIRENZ
     Dosage: 1 DOSAGE FORM
     Route: 048
     Dates: start: 20100610
  36. EFAVIRENZ [Suspect]
     Active Substance: EFAVIRENZ
     Dosage: 1 DOSAGE FORM, QD
     Route: 048
  37. EFAVIRENZ [Suspect]
     Active Substance: EFAVIRENZ
     Dosage: UNK
     Route: 048
  38. EFAVIRENZ [Suspect]
     Active Substance: EFAVIRENZ
     Dosage: 1 DOSAGE FORM, QD; 1 TABLET/CAPSULE, DAILY
     Route: 048
     Dates: start: 20171006, end: 20180205
  39. EFAVIRENZ [Suspect]
     Active Substance: EFAVIRENZ
     Dosage: 1 DF, QD; 1 TABLET/CAPSULE, DAILY
     Route: 048
     Dates: start: 20171006
  40. EFAVIRENZ [Suspect]
     Active Substance: EFAVIRENZ
     Dosage: 1 DF, QD; 1 TABLET/CAPSULE, DAILY
     Route: 065
     Dates: start: 20171006
  41. EFAVIRENZ [Suspect]
     Active Substance: EFAVIRENZ
     Dosage: 1 DOSAGE FORM, QD
     Route: 048
     Dates: start: 20180205
  42. EFAVIRENZ [Suspect]
     Active Substance: EFAVIRENZ
     Dosage: 1 DOSAGE FORM, QD
     Route: 065
     Dates: end: 20180205
  43. EFAVIRENZ [Suspect]
     Active Substance: EFAVIRENZ
     Dosage: 1 DOSAGE FORM, QD
     Route: 065
  44. EFAVIRENZ [Suspect]
     Active Substance: EFAVIRENZ
     Dosage: UNK
     Route: 065
  45. EFAVIRENZ [Suspect]
     Active Substance: EFAVIRENZ
     Dosage: UNK
     Route: 048
     Dates: start: 20171006
  46. EFAVIRENZ [Suspect]
     Active Substance: EFAVIRENZ
     Dosage: 1 DOSAGE FORM, QD (1 DOSAGE FORM, QD)
     Route: 048
     Dates: start: 20171006, end: 20180205
  47. FOLIC ACID [Suspect]
     Active Substance: FOLIC ACID
     Indication: Supplementation therapy
     Dosage: UNK
     Route: 065
  48. FOLIC ACID [Suspect]
     Active Substance: FOLIC ACID
     Dosage: 1 DF, QD (1 TABLET/CAPSULE, DAILY)
     Route: 048
  49. FOLIC ACID [Suspect]
     Active Substance: FOLIC ACID
     Dosage: UNK
     Route: 048
  50. FOLIC ACID [Suspect]
     Active Substance: FOLIC ACID
     Dosage: 1 MILLIGRAM, QD
     Route: 048
  51. FOLIC ACID [Suspect]
     Active Substance: FOLIC ACID
     Dosage: UNK
     Route: 065
  52. FOLIC ACID [Suspect]
     Active Substance: FOLIC ACID
     Dosage: UNK
     Route: 065
  53. FOLIC ACID [Suspect]
     Active Substance: FOLIC ACID
     Dosage: UNK
     Route: 065
  54. FOLIC ACID [Suspect]
     Active Substance: FOLIC ACID
     Dosage: UNK
     Route: 048
  55. FOLIC ACID [Suspect]
     Active Substance: FOLIC ACID
     Dosage: 1 TABLET/CAPSULE
     Route: 048
  56. FOLIC ACID [Suspect]
     Active Substance: FOLIC ACID
     Dosage: 1 TABLET/CAPSULE
     Route: 048
  57. FOLIC ACID [Suspect]
     Active Substance: FOLIC ACID
     Dosage: 1 TABLET/CAPSULE
     Route: 048
  58. FOLIC ACID [Suspect]
     Active Substance: FOLIC ACID
     Dosage: 1 DF, QD (1 TABLET/CAPSULE, DAILY)
     Route: 065
  59. FOLIC ACID [Suspect]
     Active Substance: FOLIC ACID
     Dosage: UNK, QD(1 TABLET/CAPSULE, DAILY)
     Route: 065
  60. FOLIC ACID [Suspect]
     Active Substance: FOLIC ACID
     Dosage: 1 MILLIGRAM, QD
     Route: 065
  61. TRUVADA [Suspect]
     Active Substance: EMTRICITABINE\TENOFOVIR DISOPROXIL FUMARATE
     Indication: HIV infection
     Dosage: 1 DOSAGE FORM, QD (1 TABLET, QD START DATE: 06-OCT-2017)
     Route: 065
  62. TRUVADA [Suspect]
     Active Substance: EMTRICITABINE\TENOFOVIR DISOPROXIL FUMARATE
     Indication: Supplementation therapy
     Dosage: 1 DF, QD (QD; 1 TABLET/CAPSULE, QD)
     Route: 048
     Dates: start: 20180205
  63. TRUVADA [Suspect]
     Active Substance: EMTRICITABINE\TENOFOVIR DISOPROXIL FUMARATE
     Dosage: 1 DF, QD (1 TABLET/CAPSULE, QD)
     Route: 065
     Dates: start: 20180205
  64. TRUVADA [Suspect]
     Active Substance: EMTRICITABINE\TENOFOVIR DISOPROXIL FUMARATE
     Dosage: 1 DF,1 TABLET, QD (REPORTED TWICE)
     Route: 048
     Dates: start: 20171006, end: 20180205
  65. TRUVADA [Suspect]
     Active Substance: EMTRICITABINE\TENOFOVIR DISOPROXIL FUMARATE
     Dosage: 1 DF, QD 1 TABLET/CAPSULE, QD
     Route: 048
     Dates: start: 20180205
  66. TRUVADA [Suspect]
     Active Substance: EMTRICITABINE\TENOFOVIR DISOPROXIL FUMARATE
     Dosage: 1 DF, QD 1 TABLET/CAPSULE, QD
     Route: 048
  67. TRUVADA [Suspect]
     Active Substance: EMTRICITABINE\TENOFOVIR DISOPROXIL FUMARATE
     Dosage: 1 DF, QD 1 TABLET/CAPSULE, QD
     Route: 048
  68. TRUVADA [Suspect]
     Active Substance: EMTRICITABINE\TENOFOVIR DISOPROXIL FUMARATE
     Dosage: 1 DF, QD (1 TABLET/CAPSULE, QD)
     Route: 065
  69. TRUVADA [Suspect]
     Active Substance: EMTRICITABINE\TENOFOVIR DISOPROXIL FUMARATE
     Dosage: 1 DOSAGE FORM, QD
     Route: 048
  70. TRUVADA [Suspect]
     Active Substance: EMTRICITABINE\TENOFOVIR DISOPROXIL FUMARATE
     Dosage: UNK
     Route: 048
  71. TRUVADA [Suspect]
     Active Substance: EMTRICITABINE\TENOFOVIR DISOPROXIL FUMARATE
     Dosage: 1 DFFORM, QD;1 TABLET/CAPSULE, QD
     Route: 048
     Dates: start: 20180205
  72. TRUVADA [Suspect]
     Active Substance: EMTRICITABINE\TENOFOVIR DISOPROXIL FUMARATE
     Dosage: 1 DF FORM, QD;1 TABLET/CAPSULE, QD
     Route: 048
     Dates: start: 20180205
  73. TRUVADA [Suspect]
     Active Substance: EMTRICITABINE\TENOFOVIR DISOPROXIL FUMARATE
     Dosage: 1 DF QD; 1 TABLET, QD (REPORTED TWICE)
     Route: 048
     Dates: start: 20171006, end: 20180205
  74. INSULIN ASPART [Suspect]
     Active Substance: INSULIN ASPART
     Indication: Product used for unknown indication
     Dosage: UNK
     Route: 065
  75. INSULIN ASPART [Suspect]
     Active Substance: INSULIN ASPART
     Dosage: UNK
     Route: 065
  76. INSULIN ASPART [Suspect]
     Active Substance: INSULIN ASPART
     Dosage: UNK
     Route: 065
  77. INSULIN ASPART [Suspect]
     Active Substance: INSULIN ASPART
     Dosage: UNK
     Route: 065
  78. INSULIN ASPART [Suspect]
     Active Substance: INSULIN ASPART
     Dosage: UNK
     Route: 065
  79. INSULIN ASPART [Suspect]
     Active Substance: INSULIN ASPART
     Dosage: UNK
     Route: 065
  80. INSULIN ASPART [Suspect]
     Active Substance: INSULIN ASPART
     Dosage: UNK
     Route: 065
  81. INSULIN ASPART [Suspect]
     Active Substance: INSULIN ASPART
     Dosage: UNK
     Route: 065
  82. INSULIN ASPART [Suspect]
     Active Substance: INSULIN ASPART
     Dosage: UNK
     Route: 065
  83. EMTRICITABINE\TENOFOVIR DISOPROXIL [Suspect]
     Active Substance: EMTRICITABINE\TENOFOVIR DISOPROXIL
     Indication: HIV infection
     Dosage: UNK
     Route: 048
  84. EMTRICITABINE\TENOFOVIR DISOPROXIL [Suspect]
     Active Substance: EMTRICITABINE\TENOFOVIR DISOPROXIL
     Indication: Supplementation therapy
     Dosage: 1 DOSAGE FORM, QD
     Route: 048
  85. EMTRICITABINE\TENOFOVIR DISOPROXIL [Suspect]
     Active Substance: EMTRICITABINE\TENOFOVIR DISOPROXIL
     Dosage: 1 DOSAGE FORM, QD
     Route: 048
     Dates: start: 20170610, end: 20180205
  86. EMTRICITABINE\TENOFOVIR DISOPROXIL [Suspect]
     Active Substance: EMTRICITABINE\TENOFOVIR DISOPROXIL
     Dosage: 1 DOSAGE FORM, QD
     Route: 048
     Dates: start: 20171006, end: 20180205
  87. EMTRICITABINE\TENOFOVIR DISOPROXIL [Suspect]
     Active Substance: EMTRICITABINE\TENOFOVIR DISOPROXIL
     Dosage: 1 DOSAGE FORM, QD
     Route: 048
     Dates: start: 20180205
  88. INSULIN ASPART [Suspect]
     Active Substance: INSULIN ASPART
     Indication: Product used for unknown indication
     Dosage: UNK
     Route: 065
  89. INSULIN ASPART [Suspect]
     Active Substance: INSULIN ASPART
     Dosage: UNK
     Route: 048
  90. INSULIN ASPART [Suspect]
     Active Substance: INSULIN ASPART
     Dosage: UNK, QW
     Route: 065
  91. INSULIN ASPART [Suspect]
     Active Substance: INSULIN ASPART
     Dosage: UNK, QW
     Route: 065
  92. INSULIN ASPART [Suspect]
     Active Substance: INSULIN ASPART
     Dosage: UNK, QW
     Route: 065
  93. INSULIN ASPART [Suspect]
     Active Substance: INSULIN ASPART
     Dosage: UNK
     Route: 065
  94. INSULIN ASPART [Suspect]
     Active Substance: INSULIN ASPART
     Dosage: UNK
     Route: 065
  95. INSULIN ASPART [Suspect]
     Active Substance: INSULIN ASPART
     Dosage: UNK
     Route: 065
  96. INSULIN ASPART [Suspect]
     Active Substance: INSULIN ASPART
     Dosage: UNK
     Route: 065
  97. INSULIN ASPART [Suspect]
     Active Substance: INSULIN ASPART
     Dosage: UNK
     Route: 065
  98. INSULIN ASPART [Suspect]
     Active Substance: INSULIN ASPART
     Dosage: UNK
     Route: 065
  99. INSULIN ASPART [Suspect]
     Active Substance: INSULIN ASPART
     Dosage: UNK
     Route: 065
  100. INSULIN ASPART [Suspect]
     Active Substance: INSULIN ASPART
     Dosage: UNK
     Route: 065
  101. VITAMIN B12 [Suspect]
     Active Substance: CYANOCOBALAMIN
     Indication: Supplementation therapy
     Dosage: UNK
     Route: 065
  102. VITAMIN B12 [Suspect]
     Active Substance: CYANOCOBALAMIN
     Dosage: UNK
     Route: 065
  103. VITAMIN B12 [Suspect]
     Active Substance: CYANOCOBALAMIN
     Dosage: UNK, QW
     Route: 065
     Dates: start: 20100610
  104. VITAMIN B12 [Suspect]
     Active Substance: CYANOCOBALAMIN
     Dosage: UNK, QW
     Route: 048
     Dates: start: 20100610
  105. ISENTRESS [Suspect]
     Active Substance: RALTEGRAVIR POTASSIUM
     Indication: HIV infection
     Dosage: 800 MILLIGRAM, Q6H
     Route: 048
     Dates: start: 20100610
  106. ISENTRESS [Suspect]
     Active Substance: RALTEGRAVIR POTASSIUM
     Dosage: UNK
     Route: 048
     Dates: start: 20100610
  107. ISENTRESS [Suspect]
     Active Substance: RALTEGRAVIR POTASSIUM
     Dosage: 3200 MG, QD, (800 MG, QID)
     Route: 048
     Dates: start: 20100610
  108. ISENTRESS [Suspect]
     Active Substance: RALTEGRAVIR POTASSIUM
     Dosage: 800 MG, QID, 800 MG, Q6H
     Route: 065
     Dates: start: 20100610
  109. ISENTRESS [Suspect]
     Active Substance: RALTEGRAVIR POTASSIUM
     Dosage: 800 MILLIGRAM, QID, 800 MG, Q6H
     Route: 065
     Dates: start: 20100610
  110. ISENTRESS [Suspect]
     Active Substance: RALTEGRAVIR POTASSIUM
     Dosage: 3200 MG, QD(800 MG, QID, 800 MG, Q6H
     Route: 065
  111. ISENTRESS [Suspect]
     Active Substance: RALTEGRAVIR POTASSIUM
     Dosage: 800 MILLIGRAM, QID
     Route: 048
  112. ISENTRESS [Suspect]
     Active Substance: RALTEGRAVIR POTASSIUM
     Dosage: 800 MILLIGRAM, Q6H (800 MG, Q6H)
     Route: 065
  113. ISENTRESS [Suspect]
     Active Substance: RALTEGRAVIR POTASSIUM
     Dosage: UNK
     Route: 065
  114. LAMIVUDINE [Suspect]
     Active Substance: LAMIVUDINE
     Indication: Antiretroviral therapy
     Dosage: 300 MILLIGRAM, QD
     Route: 048
     Dates: start: 20090101, end: 20100610
  115. LAMIVUDINE [Suspect]
     Active Substance: LAMIVUDINE
     Indication: HIV infection
     Dosage: UNK
     Route: 048
     Dates: start: 20090101, end: 20100610
  116. LAMIVUDINE [Suspect]
     Active Substance: LAMIVUDINE
     Indication: Foetal exposure during pregnancy
     Dosage: 300 MILLIGRAM
     Route: 048
  117. LAMIVUDINE [Suspect]
     Active Substance: LAMIVUDINE
     Dosage: 300 MILLIGRAM, QD
     Route: 048
     Dates: start: 20090101, end: 20100610
  118. LAMIVUDINE [Suspect]
     Active Substance: LAMIVUDINE
     Dosage: 300 MILLIGRAM
     Route: 065
     Dates: start: 20090101, end: 20100610
  119. LAMIVUDINE [Suspect]
     Active Substance: LAMIVUDINE
     Dosage: 300 MILLIGRAM, QD
     Route: 065
     Dates: start: 20090101, end: 20100610
  120. LAMIVUDINE [Suspect]
     Active Substance: LAMIVUDINE
     Dosage: UNK
     Route: 065
     Dates: start: 20120610
  121. LOPINAVIR [Suspect]
     Active Substance: LOPINAVIR
     Indication: Antiviral treatment
     Dosage: UNK
     Route: 048
  122. LOPINAVIR [Suspect]
     Active Substance: LOPINAVIR
     Indication: HIV infection
     Dosage: UNK
     Route: 048
     Dates: start: 20100610
  123. LOPINAVIR [Suspect]
     Active Substance: LOPINAVIR
     Indication: Product used for unknown indication
     Dosage: UNK
     Route: 065
  124. LOPINAVIR [Suspect]
     Active Substance: LOPINAVIR
     Indication: HIV infection
     Dosage: UNK
     Route: 048
     Dates: start: 20100610
  125. RITONAVIR [Suspect]
     Active Substance: RITONAVIR
     Indication: Antiviral treatment
     Dosage: UNK
     Route: 065
  126. RITONAVIR [Suspect]
     Active Substance: RITONAVIR
     Indication: HIV infection
     Dosage: UNK
     Route: 048
     Dates: start: 20100610
  127. RITONAVIR [Suspect]
     Active Substance: RITONAVIR
     Dosage: UNK
     Route: 065
     Dates: start: 20100610
  128. RITONAVIR [Suspect]
     Active Substance: RITONAVIR
     Dosage: UNK
     Route: 065
     Dates: start: 20100610
  129. RITONAVIR [Suspect]
     Active Substance: RITONAVIR
     Dosage: UNK
     Route: 065
  130. RITONAVIR [Suspect]
     Active Substance: RITONAVIR
     Dosage: UNK
     Route: 065
  131. RITONAVIR [Suspect]
     Active Substance: RITONAVIR
     Dosage: UNK
     Route: 065
  132. RITONAVIR [Suspect]
     Active Substance: RITONAVIR
     Dosage: UNK
     Route: 065
  133. RITONAVIR [Suspect]
     Active Substance: RITONAVIR
     Dosage: UNK
     Route: 065
  134. RITONAVIR [Suspect]
     Active Substance: RITONAVIR
     Dosage: UNK
     Route: 065
     Dates: start: 20100610, end: 20100610
  135. NEVIRAPINE [Suspect]
     Active Substance: NEVIRAPINE
     Indication: Antiviral treatment
     Dosage: 400 MILLIGRAM, QD
     Route: 048
     Dates: start: 20090101, end: 20100610
  136. NEVIRAPINE [Suspect]
     Active Substance: NEVIRAPINE
     Indication: Antiretroviral therapy
     Dosage: 400 MILLIGRAM, QD
     Route: 048
     Dates: start: 20090101, end: 20100610
  137. NEVIRAPINE [Suspect]
     Active Substance: NEVIRAPINE
     Dosage: UNK
     Route: 048
     Dates: start: 20090101, end: 20100610
  138. NEVIRAPINE [Suspect]
     Active Substance: NEVIRAPINE
     Dosage: UNK
     Route: 065
  139. NEVIRAPINE [Suspect]
     Active Substance: NEVIRAPINE
     Dosage: 400 MILLIGRAM, QD
     Route: 048
  140. EFAVIRENZ [Suspect]
     Active Substance: EFAVIRENZ
     Indication: HIV infection
     Dosage: 1 TABLET/CAPSULE, DAILY
     Route: 048
     Dates: start: 20171006
  141. EFAVIRENZ [Suspect]
     Active Substance: EFAVIRENZ
     Indication: Product used for unknown indication
     Dosage: 1 DF, QD (1 TABLET/CAPSULE, DAILY)
     Route: 048
     Dates: start: 20171006
  142. EFAVIRENZ [Suspect]
     Active Substance: EFAVIRENZ
     Dosage: 1 DFFORM, QD(1 TABLET/CAPSULE, DAILY)
     Route: 048
  143. EFAVIRENZ [Suspect]
     Active Substance: EFAVIRENZ
     Dosage: 1 DOSAGE FORM, QD
     Route: 048
     Dates: start: 20180205
  144. TENOFOVIR [Suspect]
     Active Substance: TENOFOVIR
     Indication: HIV infection
     Dosage: 300 UNK
     Route: 048
     Dates: start: 20100610
  145. TENOFOVIR [Suspect]
     Active Substance: TENOFOVIR
     Indication: Supplementation therapy
     Dosage: 300 MG, QD
     Route: 048
     Dates: start: 20100610
  146. TENOFOVIR [Suspect]
     Active Substance: TENOFOVIR
     Indication: Product used for unknown indication
     Dosage: 1 DOSAGE FORM, QD
     Route: 065
     Dates: start: 20171006
  147. TENOFOVIR [Suspect]
     Active Substance: TENOFOVIR
     Dosage: UNK
     Route: 065
  148. TENOFOVIR [Suspect]
     Active Substance: TENOFOVIR
     Dosage: 1 DOSAGE FORM, QD
     Route: 048
     Dates: start: 20171006, end: 20180205
  149. TENOFOVIR [Suspect]
     Active Substance: TENOFOVIR
     Dosage: 1 DOSAGE FORM, QD
     Route: 048
     Dates: start: 20180205
  150. TENOFOVIR [Suspect]
     Active Substance: TENOFOVIR
     Dosage: 1 DOSAGE FORM, QD
     Route: 065
     Dates: start: 20100610, end: 20180205
  151. TENOFOVIR [Suspect]
     Active Substance: TENOFOVIR
     Dosage: 1 DOSAGE FORM, QD
     Route: 065
     Dates: start: 20171006, end: 20180205
  152. TENOFOVIR [Suspect]
     Active Substance: TENOFOVIR
     Dosage: 1 DOSAGE FORM
     Route: 048
     Dates: start: 20170610, end: 20180205
  153. TENOFOVIR [Suspect]
     Active Substance: TENOFOVIR
     Dosage: 300 MILLIGRAM, QD
     Route: 065
     Dates: start: 20100610
  154. TENOFOVIR [Suspect]
     Active Substance: TENOFOVIR
     Dosage: 1 DFFORM, QD (1 TABLET/CAPSULE DAILY)
     Route: 048
     Dates: start: 20171006, end: 20180205
  155. TENOFOVIR [Suspect]
     Active Substance: TENOFOVIR
     Dosage: 300 MILLIGRAM, QD
     Route: 048
     Dates: start: 20171006
  156. ZIDOVUDINE [Suspect]
     Active Substance: ZIDOVUDINE
     Indication: Antiviral treatment
     Dosage: 600 MG, QD
     Route: 048
     Dates: start: 20090110, end: 20100610
  157. ZIDOVUDINE [Suspect]
     Active Substance: ZIDOVUDINE
     Dosage: 600 MILLIGRAM, QD
     Route: 048
     Dates: start: 20100610
  158. ZIDOVUDINE [Suspect]
     Active Substance: ZIDOVUDINE
     Dosage: 800 MILLIGRAM, QD
     Route: 048
     Dates: start: 20100610, end: 20100610
  159. ZIDOVUDINE [Suspect]
     Active Substance: ZIDOVUDINE
     Dosage: UNK
     Route: 048
     Dates: start: 20100610
  160. ZIDOVUDINE [Suspect]
     Active Substance: ZIDOVUDINE
     Dosage: 800 MILLIGRAM, QD
     Route: 048
     Dates: start: 20090110, end: 20100610
  161. ZIDOVUDINE [Suspect]
     Active Substance: ZIDOVUDINE
     Dosage: UNK
     Route: 065
  162. ZIDOVUDINE [Suspect]
     Active Substance: ZIDOVUDINE
     Dosage: 800 MILLIGRAM, QD
     Route: 065
     Dates: start: 20100610
  163. ZIDOVUDINE [Suspect]
     Active Substance: ZIDOVUDINE
     Dosage: 600 MILLIGRAM, QD, UNK
     Route: 048
     Dates: start: 20090110, end: 20100610
  164. ZIDOVUDINE [Suspect]
     Active Substance: ZIDOVUDINE
     Dosage: 800 MILLIGRAM, QD
     Route: 048
     Dates: start: 20100610
  165. ZIDOVUDINE [Suspect]
     Active Substance: ZIDOVUDINE
     Dosage: 800 MILLIGRAM, QD
     Route: 048
  166. ZIDOVUDINE [Suspect]
     Active Substance: ZIDOVUDINE
     Dosage: 800 MILLIGRAM, QD
     Route: 065
     Dates: start: 20090910, end: 20100610
  167. ZIDOVUDINE [Suspect]
     Active Substance: ZIDOVUDINE
     Dosage: 600 MILLIGRAM, QD (600 MG, QD)
     Route: 065
  168. ZIDOVUDINE [Suspect]
     Active Substance: ZIDOVUDINE
     Dosage: 800 MILLIGRAM, QD
     Route: 065
  169. ZIDOVUDINE [Suspect]
     Active Substance: ZIDOVUDINE
     Dosage: UNK
     Route: 065
  170. LOPINAVIR\RITONAVIR [Suspect]
     Active Substance: LOPINAVIR\RITONAVIR
     Indication: HIV infection
     Dosage: UNK
     Route: 048
     Dates: start: 20100610, end: 20100610
  171. LOPINAVIR\RITONAVIR [Suspect]
     Active Substance: LOPINAVIR\RITONAVIR
     Indication: Antiviral treatment
     Dosage: 32 DOSAGE FORM
     Route: 065
  172. LOPINAVIR\RITONAVIR [Suspect]
     Active Substance: LOPINAVIR\RITONAVIR
     Dosage: UNK (PT. WAS NOT TAKING MEDICINE AT CONCEPTION
     Route: 065
     Dates: start: 20100610
  173. LOPINAVIR\RITONAVIR [Suspect]
     Active Substance: LOPINAVIR\RITONAVIR
     Dosage: UNK
     Route: 048
     Dates: start: 20100610
  174. LOPINAVIR\RITONAVIR [Suspect]
     Active Substance: LOPINAVIR\RITONAVIR
     Dosage: UNK
     Route: 048
     Dates: end: 20100610
  175. LOPINAVIR\RITONAVIR [Suspect]
     Active Substance: LOPINAVIR\RITONAVIR
     Dosage: UNK
     Route: 048
  176. LOPINAVIR\RITONAVIR [Suspect]
     Active Substance: LOPINAVIR\RITONAVIR
     Dosage: UNK
     Route: 065
  177. LOPINAVIR\RITONAVIR [Suspect]
     Active Substance: LOPINAVIR\RITONAVIR
     Dosage: UNK, QD
     Route: 048
     Dates: start: 20100610, end: 20100610
  178. LOPINAVIR\RITONAVIR [Suspect]
     Active Substance: LOPINAVIR\RITONAVIR
     Dosage: PATIENT WAS NOT TAKING MEDICINE AT CONCEPTION
     Route: 065
     Dates: start: 20100610
  179. LOPINAVIR\RITONAVIR [Suspect]
     Active Substance: LOPINAVIR\RITONAVIR
     Dosage: UNK
     Route: 065
  180. LOPINAVIR\RITONAVIR [Suspect]
     Active Substance: LOPINAVIR\RITONAVIR
     Dosage: PATIENT WAS NOT TAKING MEDICINE AT CONCEPTION
     Route: 048
  181. LOPINAVIR\RITONAVIR [Suspect]
     Active Substance: LOPINAVIR\RITONAVIR
     Dosage: 1 DOSAGE FORM (1 DOSAGE FORM)
     Route: 048
  182. LOPINAVIR\RITONAVIR [Suspect]
     Active Substance: LOPINAVIR\RITONAVIR
     Dosage: 1 DOSAGE FORM, QD (1 DOSAGE FORM, QD)
     Route: 048
     Dates: start: 20100610, end: 20100610
  183. LOPINAVIR\RITONAVIR [Suspect]
     Active Substance: LOPINAVIR\RITONAVIR
     Dosage: UNK
     Route: 065
     Dates: start: 20100610
  184. KALETRA [Suspect]
     Active Substance: LOPINAVIR\RITONAVIR
     Indication: HIV infection
     Dosage: 1 DOSAGE FORM, QD
     Route: 048
     Dates: start: 20100610, end: 20100610
  185. KALETRA [Suspect]
     Active Substance: LOPINAVIR\RITONAVIR
     Indication: Antiviral treatment
     Dosage: UNK
     Route: 048
     Dates: start: 20100610
  186. KALETRA [Suspect]
     Active Substance: LOPINAVIR\RITONAVIR
     Indication: HIV infection
     Dosage: 1 DOSAGE FORM, QD (1 DOSAGE FORM, QD)
     Route: 048
     Dates: start: 20100610
  187. KALETRA [Suspect]
     Active Substance: LOPINAVIR\RITONAVIR
     Dosage: 1 DOSAGE FORM
     Route: 065
  188. KALETRA [Suspect]
     Active Substance: LOPINAVIR\RITONAVIR
     Dosage: 1 DOSAGE FORM, QD (1 DOSAGE FORM, QD)
     Route: 065
     Dates: start: 20100610
  189. KALETRA [Suspect]
     Active Substance: LOPINAVIR\RITONAVIR
     Dosage: UNK
     Route: 048
  190. KALETRA [Suspect]
     Active Substance: LOPINAVIR\RITONAVIR
     Dosage: 1 DOSAGE FORM, QD
     Route: 065
     Dates: start: 20100610, end: 20100610
  191. TENOFOVIR [Suspect]
     Active Substance: TENOFOVIR
     Indication: HIV infection
     Dosage: UNK
     Route: 048
     Dates: start: 20100610
  192. TENOFOVIR [Suspect]
     Active Substance: TENOFOVIR
     Dosage: 300 MILLIGRAM, QD
     Route: 048
     Dates: start: 20100610
  193. LOPINAVIR\RITONAVIR [Suspect]
     Active Substance: LOPINAVIR\RITONAVIR
     Indication: HIV infection
     Dosage: UNK
     Route: 048
     Dates: start: 20100610
  194. LOPINAVIR\RITONAVIR [Suspect]
     Active Substance: LOPINAVIR\RITONAVIR
     Indication: Antiviral treatment
     Dosage: UNK
     Route: 048
  195. TENOFOVIR DISOPROXIL FUMARATE [Suspect]
     Active Substance: TENOFOVIR DISOPROXIL FUMARATE
     Indication: HIV infection
     Dosage: 1 DOSAGE FORM
     Route: 065
     Dates: start: 20170610, end: 20180205
  196. TENOFOVIR DISOPROXIL FUMARATE [Suspect]
     Active Substance: TENOFOVIR DISOPROXIL FUMARATE
     Indication: Supplementation therapy
     Dosage: 1 DOSAGE FORM, QD
     Route: 048
     Dates: start: 20171006
  197. TENOFOVIR DISOPROXIL FUMARATE [Suspect]
     Active Substance: TENOFOVIR DISOPROXIL FUMARATE
     Dosage: 1 DOSAGE FORM, QD
     Route: 048
     Dates: start: 20171006, end: 20180205
  198. TENOFOVIR DISOPROXIL FUMARATE [Suspect]
     Active Substance: TENOFOVIR DISOPROXIL FUMARATE
     Dosage: 1 DOSAGE FORM, QD (1 DOSAGE FORM, QD (1 TABLET/CAPSULE, DAILY))
     Route: 048
     Dates: start: 20180205
  199. TENOFOVIR DISOPROXIL FUMARATE [Suspect]
     Active Substance: TENOFOVIR DISOPROXIL FUMARATE
     Dosage: UNK
     Route: 065
  200. TENOFOVIR DISOPROXIL FUMARATE [Suspect]
     Active Substance: TENOFOVIR DISOPROXIL FUMARATE
     Dosage: 1 DOSAGE FORM, QD
     Route: 048
     Dates: start: 20170610, end: 20180205
  201. TENOFOVIR DISOPROXIL FUMARATE [Suspect]
     Active Substance: TENOFOVIR DISOPROXIL FUMARATE
     Dosage: UNK
     Route: 048
  202. TENOFOVIR DISOPROXIL FUMARATE [Suspect]
     Active Substance: TENOFOVIR DISOPROXIL FUMARATE
     Dosage: 300 MILLIGRAM, QD
     Route: 048
  203. TENOFOVIR DISOPROXIL FUMARATE [Suspect]
     Active Substance: TENOFOVIR DISOPROXIL FUMARATE
     Dosage: 1 DOSAGE FORM, QD (1 DOSAGE FORM, QD (1 TABLET/CAPSULE, DAILY))
     Route: 048
  204. TENOFOVIR DISOPROXIL FUMARATE [Suspect]
     Active Substance: TENOFOVIR DISOPROXIL FUMARATE
     Dosage: 1 DOSAGE FORM, QD (1 DOSAGE FORM, QD (1 TABLET/CAPSULE, DAILY))
     Route: 065
     Dates: start: 20171006, end: 20180205
  205. CYANOCOBALAMIN [Suspect]
     Active Substance: CYANOCOBALAMIN
     Indication: Supplementation therapy
     Dosage: UNK, QW
     Route: 065
  206. CYANOCOBALAMIN [Suspect]
     Active Substance: CYANOCOBALAMIN
     Indication: Product used for unknown indication
     Dosage: UNK
     Route: 065
  207. CYANOCOBALAMIN [Suspect]
     Active Substance: CYANOCOBALAMIN
     Dosage: UNK
     Route: 065
  208. CYANOCOBALAMIN [Suspect]
     Active Substance: CYANOCOBALAMIN
     Dosage: UNK
     Route: 065
  209. FOLATE SODIUM [Suspect]
     Active Substance: FOLATE SODIUM
     Indication: Product used for unknown indication
     Dosage: UNK
     Route: 065
  210. FOLATE SODIUM [Suspect]
     Active Substance: FOLATE SODIUM
     Indication: Supplementation therapy
     Dosage: UNK
     Route: 065
  211. FOLATE SODIUM [Suspect]
     Active Substance: FOLATE SODIUM
     Dosage: UNK
     Route: 048
  212. FOLATE SODIUM [Suspect]
     Active Substance: FOLATE SODIUM
     Dosage: 1DOSAGE FORM, QD/05-FEB-2018
     Route: 048
  213. FOLATE SODIUM [Suspect]
     Active Substance: FOLATE SODIUM
     Dosage: UNK
     Route: 065
  214. FOLATE SODIUM [Suspect]
     Active Substance: FOLATE SODIUM
     Indication: Supplementation therapy
     Dosage: 1 DF, QD, 1 TABLET/CAPSULE, DAILY
     Route: 065
  215. FOLATE SODIUM [Suspect]
     Active Substance: FOLATE SODIUM
     Dosage: UNK
     Route: 065
  216. FOLATE SODIUM [Suspect]
     Active Substance: FOLATE SODIUM
     Dosage: UNK
     Route: 065
  217. EFAVIRENZ [Suspect]
     Active Substance: EFAVIRENZ
     Indication: HIV infection
     Dosage: 1 DF, QD, 1 TABLET/CAPSULE, DAILY (06-OCT-2017)
     Route: 048
  218. EFAVIRENZ [Suspect]
     Active Substance: EFAVIRENZ
     Dosage: 1 DOSAGE FORM, QD
     Route: 048
     Dates: start: 20180205
  219. EFAVIRENZ [Suspect]
     Active Substance: EFAVIRENZ
     Dosage: UNK
     Route: 065
  220. EFAVIRENZ [Suspect]
     Active Substance: EFAVIRENZ
     Dosage: UNK QD (UNK UNK, QD)
     Route: 065
     Dates: start: 20171006
  221. EMTRICITABINE\TENOFOVIR DISOPROXIL [Suspect]
     Active Substance: EMTRICITABINE\TENOFOVIR DISOPROXIL
     Indication: HIV infection
     Dosage: 1 TABLET/CAPSULE, DAILY (06-OCT-2017)
     Route: 048
     Dates: end: 20180205
  222. EMTRICITABINE\TENOFOVIR DISOPROXIL [Suspect]
     Active Substance: EMTRICITABINE\TENOFOVIR DISOPROXIL
     Indication: Supplementation therapy
     Dosage: 1 MG/3ML, TABLET/CAPSULE, DAILY
     Route: 048
     Dates: start: 20171006
  223. EMTRICITABINE\TENOFOVIR DISOPROXIL [Suspect]
     Active Substance: EMTRICITABINE\TENOFOVIR DISOPROXIL
     Dosage: 1 MG/3ML, TABLET/CAPSULE, DAILY
     Route: 065
     Dates: start: 20180205
  224. EMTRICITABINE\TENOFOVIR DISOPROXIL [Suspect]
     Active Substance: EMTRICITABINE\TENOFOVIR DISOPROXIL
     Dosage: 1 TABLET/CAPSULE, DAILY
     Route: 065
     Dates: start: 20180205
  225. EMTRICITABINE\TENOFOVIR DISOPROXIL [Suspect]
     Active Substance: EMTRICITABINE\TENOFOVIR DISOPROXIL
     Dosage: 1 TABLET/CAPSULE, DAILY
     Route: 048
     Dates: start: 20171006
  226. EMTRICITABINE [Suspect]
     Active Substance: EMTRICITABINE
     Indication: Supplementation therapy
     Dosage: 1 DF, QD (1 TABLET/CAPSULE, DAILY) 05-FEB-2018
     Route: 065
     Dates: end: 20180205
  227. EMTRICITABINE [Suspect]
     Active Substance: EMTRICITABINE
     Indication: HIV infection
     Dosage: 1 DF , QD (1 TABLET/CAPSULE DAILY)
     Route: 048
     Dates: start: 20171006, end: 20180205
  228. EMTRICITABINE [Suspect]
     Active Substance: EMTRICITABINE
     Indication: Product used for unknown indication
     Dosage: 1 DF, QD (1 TABLET/CAPSULE, DAILY)
     Route: 048
     Dates: start: 20171006
  229. EMTRICITABINE [Suspect]
     Active Substance: EMTRICITABINE
     Dosage: 1 DF, QD; 1ST TRIMESTER
     Route: 048
  230. EMTRICITABINE [Suspect]
     Active Substance: EMTRICITABINE
     Dosage: 1 DOSAGE FORM, QD
     Route: 048
     Dates: start: 20170610, end: 20180205
  231. EMTRICITABINE [Suspect]
     Active Substance: EMTRICITABINE
     Dosage: 1 DF, QD, 1 DOSAGE FORM, QD
     Route: 065
  232. EMTRICITABINE [Suspect]
     Active Substance: EMTRICITABINE
     Dosage: 1 DF, QD
     Route: 065
  233. EMTRICITABINE [Suspect]
     Active Substance: EMTRICITABINE
     Dosage: UNK
     Route: 065
  234. EMTRICITABINE [Suspect]
     Active Substance: EMTRICITABINE
     Dosage: 1 DOSAGE FORM, QD
     Route: 048
     Dates: start: 20170610, end: 20180205
  235. EMTRICITABINE [Suspect]
     Active Substance: EMTRICITABINE
     Dosage: 1 DOSAGE FORM, QD (1 DOSAGE FORM QD, TABLET/CAPSULE)
     Route: 065
     Dates: start: 20171006
  236. EMTRICITABINE [Suspect]
     Active Substance: EMTRICITABINE
     Dosage: 1 DOSAGE FORM, QD (1 DOSAGE FORM QD)
     Route: 065
     Dates: start: 20170610, end: 20180205
  237. EMTRICITABINE [Suspect]
     Active Substance: EMTRICITABINE
     Dosage: 1 DOSAGE FORM, QD
     Route: 065
     Dates: start: 20180205
  238. EMTRICITABINE [Suspect]
     Active Substance: EMTRICITABINE
     Dosage: 1 DOSAGE FORM, QD
     Route: 048
     Dates: start: 20180205
  239. VITAMIN B12 [Suspect]
     Active Substance: CYANOCOBALAMIN
     Indication: Supplementation therapy
     Dosage: UNK
     Route: 065
  240. VITAMIN B12 [Suspect]
     Active Substance: CYANOCOBALAMIN
     Dosage: UNK
     Route: 065
  241. VITAMIN B12 [Suspect]
     Active Substance: CYANOCOBALAMIN
     Dosage: UNK
     Route: 048
     Dates: start: 20100610
  242. LOPINAVIR\RITONAVIR [Suspect]
     Active Substance: LOPINAVIR\RITONAVIR
     Indication: HIV infection
     Dosage: UNK
     Route: 048
     Dates: start: 20100610
  243. LOPINAVIR\RITONAVIR [Suspect]
     Active Substance: LOPINAVIR\RITONAVIR
     Indication: Antiviral treatment
     Dosage: UNK
     Route: 065
     Dates: start: 20100610
  244. METFORMIN HYDROCHLORIDE [Concomitant]
     Active Substance: METFORMIN HYDROCHLORIDE
     Dosage: UNK
     Route: 065
  245. METFORMIN HYDROCHLORIDE [Concomitant]
     Active Substance: METFORMIN HYDROCHLORIDE
     Dosage: UNK
     Route: 065
  246. TENOFOVIR DISOPROXIL [Concomitant]
     Active Substance: TENOFOVIR DISOPROXIL
     Dosage: UNK
     Route: 065
  247. TENOFOVIR DISOPROXIL [Concomitant]
     Active Substance: TENOFOVIR DISOPROXIL
     Dosage: UNK
     Route: 065
  248. TENOFOVIR DISOPROXIL [Concomitant]
     Active Substance: TENOFOVIR DISOPROXIL
     Dosage: 1 DOSAGE FORM, QD
     Route: 065
     Dates: start: 20100610

REACTIONS (14)
  - Hepatic cytolysis [Fatal]
  - Trisomy 18 [Fatal]
  - Abortion spontaneous [Fatal]
  - Alanine aminotransferase increased [Fatal]
  - Hydrops foetalis [Fatal]
  - Aspartate aminotransferase increased [Fatal]
  - Maternal exposure during pregnancy [Fatal]
  - Caesarean section [Fatal]
  - Intentional product use issue [Fatal]
  - Cleft lip and palate [Fatal]
  - Ultrasound antenatal screen [Fatal]
  - Foetal exposure during pregnancy [Fatal]
  - Off label use [Fatal]
  - Drug abuse [Unknown]

NARRATIVE: CASE EVENT DATE: 20100629
